FAERS Safety Report 10425395 (Version 1)
Quarter: 2014Q3

REPORT INFORMATION
  Report Type: Spontaneous
  Country: US (occurrence: None)
  Receive Date: 20140725
  Receipt Date: 20140725
  Transmission Date: 20150326
  Serious: No
  Sender: FDA-Public Use
  Company Number: AP356-00720-SPO-US

PATIENT
  Age: 48 Year
  Sex: Female
  Weight: 134 kg

DRUGS (6)
  1. METFORMIN [Concomitant]
     Active Substance: METFORMIN HYDROCHLORIDE
  2. LEXAPRO [Concomitant]
     Active Substance: ESCITALOPRAM OXALATE
  3. NIFEDIPINE. [Concomitant]
     Active Substance: NIFEDIPINE
  4. PROSOM (ESTAZOLAM) [Concomitant]
  5. VITAMIN MELATONIN (MELATONIN) [Concomitant]
  6. BELVIQ [Suspect]
     Active Substance: LORCASERIN HYDROCHLORIDE
     Indication: WEIGHT DECREASED
     Route: 048
     Dates: start: 20140411, end: 201404

REACTIONS (1)
  - Migraine [None]

NARRATIVE: CASE EVENT DATE: 201404
